FAERS Safety Report 13523470 (Version 2)
Quarter: 2017Q4

REPORT INFORMATION
  Report Type: Spontaneous
  Country: US (occurrence: US)
  Receive Date: 20170508
  Receipt Date: 20171208
  Transmission Date: 20180320
  Serious: No
  Sender: FDA-Public Use
  Company Number: US-VIFOR (INTERNATIONAL) INC.-VIT-2017-04241

PATIENT
  Age: 66 Year
  Sex: Female

DRUGS (10)
  1. VELTASSA [Suspect]
     Active Substance: PATIROMER
     Indication: HYPERKALAEMIA
     Route: 048
     Dates: start: 20161209
  2. NIFEDIPINE. [Concomitant]
     Active Substance: NIFEDIPINE
  3. PROTONIX [Concomitant]
     Active Substance: PANTOPRAZOLE SODIUM
  4. RENVELA [Concomitant]
     Active Substance: SEVELAMER CARBONATE
  5. LABETALOL [Concomitant]
     Active Substance: LABETALOL\LABETALOL HYDROCHLORIDE
  6. MINOXIDIL. [Concomitant]
     Active Substance: MINOXIDIL
  7. NEURONTIN [Concomitant]
     Active Substance: GABAPENTIN
     Dates: start: 20160816
  8. CALCITRIOL. [Concomitant]
     Active Substance: CALCITRIOL
  9. CLONIDINE. [Concomitant]
     Active Substance: CLONIDINE
  10. HYDRALAZINE [Concomitant]
     Active Substance: HYDRALAZINE HYDROCHLORIDE

REACTIONS (2)
  - Muscle twitching [Unknown]
  - Tremor [Unknown]

NARRATIVE: CASE EVENT DATE: 20170414
